FAERS Safety Report 9513955 (Version 1)
Quarter: 2013Q3

REPORT INFORMATION
  Report Type: Report from Study
  Country: US (occurrence: US)
  Receive Date: 20130910
  Receipt Date: 20130910
  Transmission Date: 20140515
  Serious: Yes (Hospitalization, Other)
  Sender: FDA-Public Use
  Company Number: US-TAKEDA-TPA2013A07856

PATIENT
  Sex: 0

DRUGS (10)
  1. BLINDED PIOGLITAZONE HYDROCHLORIDE [Suspect]
     Dosage: 15 MG, QD
     Route: 048
     Dates: start: 20110314, end: 20110411
  2. BLINDED PLACEBO [Suspect]
     Dosage: 15 MG, QD
     Route: 048
     Dates: start: 20110314, end: 20110411
  3. BLINDED PIOGLITAZONE HYDROCHLORIDE [Suspect]
     Dosage: 30 MG, QD
     Route: 048
     Dates: start: 20110412, end: 20110502
  4. BLINDED PLACEBO [Suspect]
     Dosage: 30 MG, QD
     Route: 048
     Dates: start: 20110412, end: 20110502
  5. BLINDED PIOGLITAZONE HYDROCHLORIDE [Suspect]
     Dosage: 45 MG, QD
     Route: 048
     Dates: start: 20110503
  6. BLINDED PLACEBO [Suspect]
     Dosage: 45 MG, QD
     Route: 048
     Dates: start: 20110503
  7. WARFARIN [Concomitant]
     Dosage: UNK
  8. SIMVASTATIN [Concomitant]
     Dosage: UNK
  9. BENDROFLUMETHIAZIDE [Concomitant]
     Dosage: UNK
  10. ALENDRONIC ACID [Concomitant]
     Dosage: UNK

REACTIONS (3)
  - Thoracic vertebral fracture [Not Recovered/Not Resolved]
  - Back pain [Not Recovered/Not Resolved]
  - Fall [Not Recovered/Not Resolved]
